FAERS Safety Report 9929892 (Version 2)
Quarter: 2014Q1

REPORT INFORMATION
  Report Type: Spontaneous
  Country: US (occurrence: US)
  Receive Date: 20140227
  Receipt Date: 20140324
  Transmission Date: 20141002
  Serious: No
  Sender: FDA-Public Use
  Company Number: US-GILEAD-2014-0095112

PATIENT
  Sex: Male
  Weight: 104.31 kg

DRUGS (19)
  1. LETAIRIS [Suspect]
     Indication: PULMONARY HYPERTENSION
     Dosage: 5 MG, QD
     Route: 048
     Dates: start: 20130416
  2. LETAIRIS [Suspect]
     Indication: SLEEP APNOEA SYNDROME
  3. LETAIRIS [Suspect]
     Indication: HYPOXIA
  4. LETAIRIS [Suspect]
     Indication: CHRONIC OBSTRUCTIVE PULMONARY DISEASE
  5. OXYGEN [Concomitant]
  6. ACTOPLUS MET [Concomitant]
  7. ATENOLOL [Concomitant]
  8. GLIPIZIDE [Concomitant]
  9. BUMETANIDE [Concomitant]
  10. HYDROCODONE/ACETAMINOPHEN          /01554201/ [Concomitant]
  11. PANTOPRAZOLE [Concomitant]
  12. SILDENAFIL CITRATE [Concomitant]
  13. THEOPHYLLINE [Concomitant]
  14. ALBUTEROL                          /00139501/ [Concomitant]
  15. ASPIRIN [Concomitant]
  16. CHLORTHALIDONE [Concomitant]
  17. IPRATROPIUM BROMIDE/ALBUTEROL SULFATE [Concomitant]
  18. METAMUCIL                          /00091301/ [Concomitant]
  19. SIMVASTATIN [Concomitant]

REACTIONS (1)
  - Drug ineffective [Unknown]
